FAERS Safety Report 23841285 (Version 1)
Quarter: 2024Q2

REPORT INFORMATION
  Report Type: Spontaneous
  Country: JP (occurrence: JP)
  Receive Date: 20240510
  Receipt Date: 20240510
  Transmission Date: 20240716
  Serious: Yes (Hospitalization, Other)
  Sender: FDA-Public Use
  Company Number: JP-NKFPHARMA-2024MPLIT00118

PATIENT
  Age: 69 Year
  Sex: Male
  Weight: 70 kg

DRUGS (13)
  1. HEPARIN [Suspect]
     Active Substance: HEPARIN SODIUM
     Indication: Thrombocytosis
     Route: 042
  2. HEPARIN [Suspect]
     Active Substance: HEPARIN SODIUM
     Route: 042
  3. HEPARIN [Suspect]
     Active Substance: HEPARIN SODIUM
     Route: 042
  4. HEPARIN [Suspect]
     Active Substance: HEPARIN SODIUM
     Dosage: EVERY 4 TO 12 H
     Route: 042
  5. HEPARIN [Suspect]
     Active Substance: HEPARIN SODIUM
     Dosage: EVERY 4 TO 12 H
     Route: 042
  6. HEPARIN [Suspect]
     Active Substance: HEPARIN SODIUM
     Dosage: EVERY 4 TO 12 H
     Route: 042
  7. HEPARIN [Suspect]
     Active Substance: HEPARIN SODIUM
     Dosage: EVERY 4 TO 12 H
     Route: 042
  8. HEPARIN [Suspect]
     Active Substance: HEPARIN SODIUM
     Dosage: REDUCED
     Route: 042
  9. ASPIRIN [Suspect]
     Active Substance: ASPIRIN
     Indication: Thrombocytosis
     Route: 048
  10. HYDROXYUREA [Suspect]
     Active Substance: HYDROXYUREA
     Indication: Thrombocytosis
     Route: 065
  11. ARGATROBAN [Suspect]
     Active Substance: ARGATROBAN
     Indication: Thrombocytosis
     Route: 042
  12. NAFAMOSTAT [Suspect]
     Active Substance: NAFAMOSTAT
     Indication: Thrombocytosis
     Route: 065
  13. WARFARIN [Suspect]
     Active Substance: WARFARIN
     Indication: Thrombocytosis
     Dosage: ON DAYS 1 AND 2
     Route: 048

REACTIONS (2)
  - Cardiac tamponade [Unknown]
  - Drug ineffective [Unknown]
